FAERS Safety Report 7027212-5 (Version None)
Quarter: 2010Q3

REPORT INFORMATION
  Report Type: 
  Country: None (occurrence: None)
  Receive Date: 20100929
  Receipt Date: 20100914
  Transmission Date: 20110219
  Serious: Yes (Other)
  Sender: FDA-Public Use
  Company Number: AUR-APL-2010-02291

PATIENT
  Age: 24 Year
  Sex: Male

DRUGS (3)
  1. CIPROFLOXACIN [Suspect]
     Indication: ORCHITIS
     Dosage: 500MG-TWICE DAILY-ORAL
     Route: 048
     Dates: start: 20100813, end: 20100823
  2. OXYTETRACYCLINE [Concomitant]
  3. PAROXETINE HCL [Concomitant]

REACTIONS (6)
  - ANXIETY [None]
  - CONDITION AGGRAVATED [None]
  - DEPRESSION [None]
  - FATIGUE [None]
  - JAUNDICE [None]
  - LETHARGY [None]
